FAERS Safety Report 5449961-2 (Version None)
Quarter: 2007Q3

REPORT INFORMATION
  Report Type: 
  Country: None (occurrence: None)
  Receive Date: 20070912
  Receipt Date: 20070904
  Transmission Date: 20080115
  Serious: Yes (Hospitalization)
  Sender: FDA-Public Use
  Company Number: US-BRISTOL-MYERS SQUIBB COMPANY-13903042

PATIENT
  Age: 63 Year
  Sex: Female

DRUGS (7)
  1. METFORMIN HCL [Suspect]
     Indication: DIABETES MELLITUS
     Route: 048
     Dates: start: 20061019, end: 20070618
  2. BLINDED: LIRAGLUTIDE [Suspect]
     Indication: DIABETES MELLITUS
     Dates: start: 20061221, end: 20070618
  3. BLINDED: PLACEBO [Suspect]
  4. AVANDIA [Suspect]
     Indication: DIABETES MELLITUS
     Dates: start: 20061019, end: 20070618
  5. PAXIL [Concomitant]
     Dates: start: 20041101
  6. TOPROL-XL [Concomitant]
     Dates: start: 20060401
  7. PEPCID [Concomitant]
     Dates: start: 20061027

REACTIONS (1)
  - CHEST PAIN [None]
